FAERS Safety Report 13634900 (Version 1)
Quarter: 2017Q2

REPORT INFORMATION
  Report Type: Report from Study
  Country: None (occurrence: US)
  Receive Date: 20170609
  Receipt Date: 20170609
  Transmission Date: 20170830
  Serious: Yes (Hospitalization, Other)
  Sender: FDA-Public Use
  Company Number: US-ABBVIE-17K-163-2000789-00

PATIENT
  Sex: Male

DRUGS (1)
  1. HUMIRA [Suspect]
     Active Substance: ADALIMUMAB
     Indication: RHEUMATOID ARTHRITIS
     Route: 058
     Dates: end: 20170503

REACTIONS (6)
  - Device issue [Recovering/Resolving]
  - Paraesthesia [Not Recovered/Not Resolved]
  - Pneumonia [Recovered/Resolved]
  - Pain in extremity [Not Recovered/Not Resolved]
  - Hernia [Recovering/Resolving]
  - Bronchitis [Recovered/Resolved]

NARRATIVE: CASE EVENT DATE: 2017
